FAERS Safety Report 5737549-5 (Version None)
Quarter: 2008Q2

REPORT INFORMATION
  Report Type: 
  Country: None (occurrence: None)
  Receive Date: 20080514
  Receipt Date: 20080512
  Transmission Date: 20081010
  Serious: Yes (Other)
  Sender: FDA-Public Use
  Company Number: A0717479A

PATIENT
  Age: 55 Year
  Sex: Female

DRUGS (13)
  1. ALLI [Suspect]
     Indication: WEIGHT LOSS DIET
     Route: 048
  2. GEODON [Concomitant]
  3. COGENTIN [Concomitant]
  4. EFFEXOR [Concomitant]
  5. ACIPHEX [Concomitant]
  6. METOPROLOL TARTRATE [Concomitant]
  7. HYDROCHLOROTHIAZIDE [Concomitant]
  8. ASPIRIN [Concomitant]
  9. ACTONEL [Concomitant]
  10. CALCIUM [Concomitant]
  11. VITAMIN CAP [Concomitant]
  12. VICODIN [Concomitant]
  13. PREVPAC [Concomitant]

REACTIONS (3)
  - ALOPECIA [None]
  - DRY SKIN [None]
  - SKIN ATROPHY [None]
